FAERS Safety Report 13069256 (Version 1)
Quarter: 2016Q4

REPORT INFORMATION
  Report Type: Report from Study
  Country: US (occurrence: US)
  Receive Date: 20161228
  Receipt Date: 20161228
  Transmission Date: 20170207
  Serious: Yes (Hospitalization)
  Sender: FDA-Public Use
  Company Number: US-BAYER-2015-045208

PATIENT
  Age: 74 Year
  Sex: Female

DRUGS (4)
  1. NEXAVAR [Suspect]
     Active Substance: SORAFENIB
     Indication: HEPATIC CANCER
     Dosage: 200 MG, BID
     Route: 048
     Dates: start: 20150202
  2. NEXAVAR [Suspect]
     Active Substance: SORAFENIB
     Indication: HEPATIC CANCER
  3. NEXAVAR [Suspect]
     Active Substance: SORAFENIB
     Indication: HEPATOCELLULAR CARCINOMA
     Dosage: 400 MG, QD
     Route: 048
     Dates: end: 2015
  4. NEXAVAR [Suspect]
     Active Substance: SORAFENIB
     Indication: HEPATOBLASTOMA
     Dosage: 200 MG, QD
     Route: 048
     Dates: start: 2015

REACTIONS (9)
  - Chemotherapy [None]
  - Diarrhoea [None]
  - Loss of consciousness [Unknown]
  - Mass [None]
  - Pain in extremity [None]
  - Alopecia [None]
  - Malaise [None]
  - Therapy cessation [Unknown]
  - Fall [None]

NARRATIVE: CASE EVENT DATE: 201611
